FAERS Safety Report 6486900-X (Version None)
Quarter: 2009Q4

REPORT INFORMATION
  Report Type: 
  Country: None (occurrence: None)
  Receive Date: 20091210
  Receipt Date: 20091204
  Transmission Date: 20100525
  Serious: Yes (Hospitalization)
  Sender: FDA-Public Use
  Company Number: FR-BAYER-200941896GPV

PATIENT
  Age: 59 Year
  Sex: Male
  Weight: 53 kg

DRUGS (10)
  1. SORAFENIB [Suspect]
     Indication: HEPATIC NEOPLASM MALIGNANT
     Route: 048
     Dates: start: 20091021
  2. NEURONTIN [Concomitant]
     Indication: HEADACHE
     Dosage: TOTAL DAILY DOSE: 300 MG
     Dates: start: 20091114
  3. GARDENAL [Concomitant]
     Indication: EPILEPSY
     Dosage: TOTAL DAILY DOSE: 100 MG
     Dates: start: 20050101
  4. CLARITIN [Concomitant]
     Indication: HYPERSENSITIVITY
     Dates: start: 20091012
  5. OMEPRAZOLE [Concomitant]
     Indication: PROPHYLAXIS
     Dates: start: 20090815
  6. PARACETAMOL [Concomitant]
     Indication: PAIN
     Dates: start: 20090815
  7. ACTIFED [Concomitant]
     Indication: RHINITIS ALLERGIC
     Dates: start: 20091012
  8. EFFEXOR [Concomitant]
     Indication: DEPRESSION
     Dosage: TOTAL DAILY DOSE: 75 MG
     Dates: start: 20091022
  9. PROPOFAN [CAFF,CARBASAL CA+,CHLORPHENAM MAL,DEXTROPROPOXYPH,PARACET] [Concomitant]
     Indication: HEADACHE
     Dates: start: 20091110, end: 20091113
  10. IXPRIM [Concomitant]
     Indication: HEADACHE
     Dosage: TOTAL DAILY DOSE: 6 DF
     Dates: start: 20091114

REACTIONS (1)
  - MALNUTRITION [None]
